FAERS Safety Report 9355944 (Version 3)
Quarter: 2013Q3

REPORT INFORMATION
  Report Type: Report from Study
  Country: JP (occurrence: JP)
  Receive Date: 20130619
  Receipt Date: 20130703
  Transmission Date: 20140515
  Serious: Yes (Life-Threatening, Hospitalization, Other)
  Sender: FDA-Public Use
  Company Number: JP-UCBSA-088373

PATIENT
  Age: 69 Year
  Sex: Female
  Weight: 42 kg

DRUGS (5)
  1. CIMZIA [Suspect]
     Indication: RHEUMATOID ARTHRITIS
     Route: 058
     Dates: start: 20130604, end: 20130604
  2. PROGRAF [Concomitant]
     Indication: RHEUMATOID ARTHRITIS
     Route: 048
     Dates: start: 20091009
  3. CELECOX [Concomitant]
     Indication: RHEUMATOID ARTHRITIS
     Route: 048
     Dates: start: 20120717
  4. TAKEPRON [Concomitant]
     Route: 048
     Dates: start: 20120703
  5. BONALON [Concomitant]
     Route: 048
     Dates: start: 20100227

REACTIONS (4)
  - Anaphylactic reaction [Recovered/Resolved]
  - Dysphonia [Recovered/Resolved]
  - Dyspnoea [Recovered/Resolved]
  - Rash [Recovered/Resolved]
